FAERS Safety Report 4627476-9 (Version None)
Quarter: 2005Q1

REPORT INFORMATION
  Report Type: 
  Country: None (occurrence: None)
  Receive Date: 20050330
  Receipt Date: 20050318
  Transmission Date: 20050727
  Serious: Yes (Other)
  Sender: FDA-Public Use
  Company Number: 2004058015

PATIENT
  Age: 76 Year
  Sex: Female
  Weight: 77.5651 kg

DRUGS (16)
  1. LIPITOR [Suspect]
     Indication: BLOOD CHOLESTEROL INCREASED
     Dosage: 20 MG (20 MG, 1 IN 1 D), ORAL
     Route: 048
  2. CELEBREX [Suspect]
     Indication: OSTEOARTHRITIS
     Dosage: UNKNOWN
     Route: 065
     Dates: start: 20040101, end: 20040101
  3. DETROL LA [Suspect]
     Indication: HYPERTONIC BLADDER
     Dosage: 4 MG (4 MG, 1 IN 1 D), ORAL
     Route: 048
     Dates: start: 20050307
  4. LEVOFLOXACIN [Suspect]
     Indication: COUGH
     Dosage: UNK (DAILY), UNKNOWN
     Route: 065
     Dates: start: 20050228, end: 20050306
  5. CIPROFLOXACIN [Suspect]
     Indication: COUGH
     Dosage: UNK (UNKNOWN), UNKNOWN
  6. SULFUR (SULFUR) [Suspect]
     Indication: ILL-DEFINED DISORDER
     Dosage: UNKNOWN
     Route: 065
  7. FOSINOPRIL SODIUM (FOSINOPRIL SODIUM) [Concomitant]
  8. FOLIC ACID [Concomitant]
  9. ASPIRIN [Concomitant]
  10. VITAMINS (VITAMINS) [Concomitant]
  11. CALCIUM (CALCIUM) [Concomitant]
  12. SERTRALINE HCL [Concomitant]
  13. BRIMONIDINE TARTRATE [Concomitant]
  14. DORZOLAMIDE HYDROCHLORIDE (DORZOLAMIDE HYDROCHLORIDE) [Concomitant]
  15. BENZONATATE [Concomitant]
  16. EZETIMIBE (EZETIMIBE) [Concomitant]

REACTIONS (12)
  - CONSTIPATION [None]
  - COUGH [None]
  - DRUG INEFFECTIVE [None]
  - DRY MOUTH [None]
  - INCONTINENCE [None]
  - NOCTURIA [None]
  - OSTEOARTHRITIS [None]
  - POLLAKIURIA [None]
  - RESPIRATORY DISORDER [None]
  - STEVENS-JOHNSON SYNDROME [None]
  - TERMINAL DRIBBLING [None]
  - TREATMENT NONCOMPLIANCE [None]
